FAERS Safety Report 10426874 (Version 1)
Quarter: 2014Q3

REPORT INFORMATION
  Report Type: Spontaneous
  Country: US (occurrence: None)
  Receive Date: 20140902
  Receipt Date: 20140902
  Transmission Date: 20150326
  Serious: Yes (Hospitalization)
  Sender: FDA-Public Use
  Company Number: None

PATIENT
  Age: 44 Year
  Sex: Male
  Weight: 77.11 kg

DRUGS (1)
  1. TEMOZOLOMIDE [Suspect]
     Active Substance: TEMOZOLOMIDE
     Indication: BRAIN NEOPLASM
     Dates: start: 20140707, end: 20140711

REACTIONS (5)
  - Fall [None]
  - Dizziness [None]
  - Hemiplegia [None]
  - Speech disorder [None]
  - Hemiparesis [None]

NARRATIVE: CASE EVENT DATE: 20140707
